FAERS Safety Report 25524524 (Version 1)
Quarter: 2025Q3

REPORT INFORMATION
  Report Type: Spontaneous
  Country: US (occurrence: None)
  Receive Date: 20250703
  Receipt Date: 20250703
  Transmission Date: 20251021
  Serious: Yes (Death)
  Sender: FDA-CTU
  Company Number: None

PATIENT
  Age: 80 Year
  Sex: Female

DRUGS (9)
  1. TOBRAMYCIN [Suspect]
     Active Substance: TOBRAMYCIN
     Indication: Bronchiectasis
     Route: 055
     Dates: start: 20191113
  2. ESTRING VAGINAL SYSTEM [Concomitant]
  3. BORIC ACID VAGINAL SUPPOSITORY [Concomitant]
  4. IPRATOPIUM INHALATION SOLUTION [Concomitant]
  5. FLUCONAZOLE [Concomitant]
     Active Substance: FLUCONAZOLE
  6. SPIRIVA RESPIMIT [Concomitant]
  7. QUETIAPINE [Concomitant]
     Active Substance: QUETIAPINE
  8. LEVOTHYROXINE [Concomitant]
     Active Substance: LEVOTHYROXINE
  9. NYSTATIN [Concomitant]
     Active Substance: NYSTATIN

REACTIONS (1)
  - Death [None]

NARRATIVE: CASE EVENT DATE: 20250530
